FAERS Safety Report 10199293 (Version 2)
Quarter: 2014Q3

REPORT INFORMATION
  Report Type: Spontaneous
  Country: US (occurrence: US)
  Receive Date: 20140527
  Receipt Date: 20140714
  Transmission Date: 20150326
  Serious: No
  Sender: FDA-Public Use
  Company Number: US-009507513-1405USA005625

PATIENT
  Sex: Female
  Weight: 90.7 kg

DRUGS (4)
  1. CITALOPRAM [Concomitant]
     Active Substance: CITALOPRAM HYDROBROMIDE
     Indication: DEPRESSION
     Dosage: UNK, UNKNOWN
  2. LORAZEPAM. [Concomitant]
     Active Substance: LORAZEPAM
     Indication: DEPRESSION
     Dosage: UNK, UNKNOWN
  3. OXYTROL FOR WOMEN [Suspect]
     Active Substance: OXYBUTYNIN
     Indication: HYPERTONIC BLADDER
     Dosage: UNKNOWN
     Route: 062
     Dates: start: 201404, end: 201406
  4. SKELAXIN [Concomitant]
     Active Substance: METAXALONE
     Indication: BACK PAIN
     Dosage: UNK, UNKNOWN

REACTIONS (6)
  - Blister [Unknown]
  - Drug administered at inappropriate site [Unknown]
  - Drug hypersensitivity [Recovered/Resolved]
  - Skin haemorrhage [Unknown]
  - Scar [Unknown]
  - Rash erythematous [Unknown]

NARRATIVE: CASE EVENT DATE: 2014
